FAERS Safety Report 7417406-9 (Version None)
Quarter: 2011Q2

REPORT INFORMATION
  Report Type: 
  Country: None (occurrence: None)
  Receive Date: 20110415
  Receipt Date: 20110408
  Transmission Date: 20111010
  Serious: Yes (Hospitalization, Disabling, Other)
  Sender: FDA-Public Use
  Company Number: GB-PFIZER INC-2011014897

PATIENT
  Age: 35 Year
  Sex: Female

DRUGS (2)
  1. AMOXICILLIN [Concomitant]
     Indication: TOOTH INFECTION
     Route: 048
  2. METRONIDAZOLE [Suspect]
     Indication: TOOTH INFECTION
     Dosage: 200 MG, 3X/DAY
     Dates: start: 20101207

REACTIONS (5)
  - VERTIGO [None]
  - ATAXIA [None]
  - VESTIBULAR DISORDER [None]
  - GAIT DISTURBANCE [None]
  - CEREBELLAR SYNDROME [None]
